FAERS Safety Report 9662325 (Version 2)
Quarter: 2013Q4

REPORT INFORMATION
  Report Type: Spontaneous
  Country: US (occurrence: US)
  Receive Date: 20131031
  Receipt Date: 20131031
  Transmission Date: 20140711
  Serious: No
  Sender: FDA-Public Use
  Company Number: US-PURDUE-USA-2010-0048595

PATIENT
  Age: 52 Year
  Sex: Male
  Weight: 68.03 kg

DRUGS (8)
  1. OXYCONTIN (NDA 22-272) [Suspect]
     Indication: ARTHRITIS
     Dosage: 60 MG, Q8H
     Dates: start: 20100916
  2. OXYCONTIN (NDA 22-272) [Suspect]
     Indication: INTERVERTEBRAL DISC DEGENERATION
  3. OXYCONTIN (NDA 22-272) [Suspect]
     Indication: OSTEOCHONDROSIS
  4. OXYCONTIN (NDA 22-272) [Suspect]
     Indication: NEURALGIA
  5. OXYCONTIN (NDA 22-272) [Suspect]
     Indication: SURGERY
  6. DEPOMEDROL [Concomitant]
     Indication: PRODUCT USED FOR UNKNOWN INDICATION
     Dosage: 160 MG, Q 6 WEEKS
     Route: 042
  7. AZULFIDINE [Concomitant]
     Indication: PRODUCT USED FOR UNKNOWN INDICATION
     Dosage: 500 MG, QID
  8. PLACANEL [Concomitant]
     Indication: PRODUCT USED FOR UNKNOWN INDICATION
     Dosage: 200 MG, BID

REACTIONS (9)
  - Arrhythmia [Recovered/Resolved]
  - Oesophageal pain [Recovered/Resolved]
  - Heart rate increased [Recovered/Resolved]
  - Chest discomfort [Recovered/Resolved]
  - Chest pain [Recovered/Resolved]
  - Drug ineffective [Unknown]
  - Product taste abnormal [Not Recovered/Not Resolved]
  - Drug effect decreased [Unknown]
  - Headache [Recovered/Resolved]
